FAERS Safety Report 20345912 (Version 3)
Quarter: 2023Q1

REPORT INFORMATION
  Report Type: Spontaneous
  Country: CA (occurrence: CA)
  Receive Date: 20220118
  Receipt Date: 20230103
  Transmission Date: 20230417
  Serious: Yes (Hospitalization, Other)
  Sender: FDA-Public Use
  Company Number: CA-PFIZER INC-2017185234

PATIENT
  Age: 75 Year
  Sex: Female

DRUGS (13)
  1. IBRANCE [Suspect]
     Active Substance: PALBOCICLIB
     Dosage: 125 MG, CYCLIC (ONCE A DAY FOR 21 DAYS ON 7 DAYS OFF)
     Route: 048
     Dates: start: 20170428
  2. IBRANCE [Suspect]
     Active Substance: PALBOCICLIB
     Dosage: 75 MG, ONCE DAILY, FOR 21 DAYS AND OFF FOR 7 DAYS
  3. ADVAIR HFA [Concomitant]
     Active Substance: FLUTICASONE PROPIONATE\SALMETEROL XINAFOATE
     Dosage: 2 DF, 1X/DAY (2 PUFFS EVERY NIGHT)
  4. BISOPROLOL [Concomitant]
     Active Substance: BISOPROLOL
     Dosage: 5 MG, QD (EVERYDAY)
  5. FASLODEX [Concomitant]
     Active Substance: FULVESTRANT
     Dosage: UNK
  6. LETROZOLE [Concomitant]
     Active Substance: LETROZOLE
     Dosage: UNK
  7. METOCLOPRAMIDE [Concomitant]
     Active Substance: METOCLOPRAMIDE
     Dosage: 5 MG (2 TABLETS), 2X/DAY
     Route: 048
  8. MORPHINE [Concomitant]
     Active Substance: MORPHINE
     Dosage: 5 MG, 3X/DAY
  9. MORPHINE [Concomitant]
     Active Substance: MORPHINE
     Dosage: 20 MG, 3X/DAY
  10. PANTOPRAZOLE [Concomitant]
     Active Substance: PANTOPRAZOLE
     Dosage: 4 MG, DAILY
  11. PREGABALIN [Concomitant]
     Active Substance: PREGABALIN
     Dosage: 50 MG, 3X/DAY
  12. SPIRIVA [Concomitant]
     Active Substance: TIOTROPIUM BROMIDE MONOHYDRATE
     Dosage: 2 DF, 1X/DAY (2 PUFFS EVERY MORNING)
  13. TYLENOL WITH CODEINE [Concomitant]
     Active Substance: ACETAMINOPHEN\CODEINE PHOSPHATE
     Dosage: 2 DF, EVERY 5 HOURS (TWO TABLETS EVERY 5 HOURS)

REACTIONS (3)
  - Upper limb fracture [Unknown]
  - Full blood count decreased [Unknown]
  - Pain in extremity [Unknown]
